FAERS Safety Report 14407772 (Version 1)
Quarter: 2018Q1

REPORT INFORMATION
  Report Type: Spontaneous
  Country: IT (occurrence: IT)
  Receive Date: 20180118
  Receipt Date: 20180118
  Transmission Date: 20180509
  Serious: Yes (Other)
  Sender: FDA-Public Use
  Company Number: IT-TEVA-811522ACC

PATIENT
  Age: 33 Year
  Sex: Female

DRUGS (1)
  1. COPAXONE [Suspect]
     Active Substance: GLATIRAMER ACETATE
     Dosage: UNKNOWN FORM OF STRENGTH
     Route: 065

REACTIONS (7)
  - Palpitations [Recovering/Resolving]
  - Pharyngeal oedema [Recovering/Resolving]
  - Multiple sclerosis [Not Recovered/Not Resolved]
  - Dizziness [Recovering/Resolving]
  - Burning sensation [Recovering/Resolving]
  - Somnolence [Recovering/Resolving]
  - Asthenia [Recovering/Resolving]
